FAERS Safety Report 6552335-4 (Version None)
Quarter: 2010Q1

REPORT INFORMATION
  Report Type: 
  Country: None (occurrence: None)
  Receive Date: 20100120
  Receipt Date: 20100114
  Transmission Date: 20100710
  Serious: Yes (Death)
  Sender: FDA-Public Use
  Company Number: 2009US004005

PATIENT
  Age: 51 Year
  Sex: Female

DRUGS (13)
  1. PROGRAF [Suspect]
     Indication: RENAL TRANSPLANT
     Dosage: 7 MG, BID, ORAL
     Route: 048
     Dates: end: 20091104
  2. HYDROMORPHONE HCL [Concomitant]
  3. MICARDIS [Concomitant]
  4. PROCRIT [Concomitant]
  5. CLONIDINE [Concomitant]
  6. LISINOPRIL [Concomitant]
  7. ROCALTROL [Concomitant]
  8. PEPCID [Concomitant]
  9. COUMADIN [Concomitant]
  10. CELLCEPT [Concomitant]
  11. METOPROLOL TARTRATE [Concomitant]
  12. TEGRETOL [Concomitant]
  13. ASCORBIC ACID [Concomitant]

REACTIONS (1)
  - PANCREATIC CARCINOMA [None]
